FAERS Safety Report 6598645-6 (Version None)
Quarter: 2010Q1

REPORT INFORMATION
  Report Type: 
  Country: None (occurrence: None)
  Receive Date: 20100224
  Receipt Date: 20100125
  Transmission Date: 20100710
  Serious: Yes (Other)
  Sender: FDA-Public Use
  Company Number: US-JNJFOC-20100203240

PATIENT
  Sex: Female

DRUGS (2)
  1. TYLENOL [Suspect]
     Route: 065
  2. TYLENOL [Suspect]
     Indication: DRUG USE FOR UNKNOWN INDICATION
     Dosage: 5 CAPLETS FOR A TOTAL OF 2500 MG
     Route: 065

REACTIONS (3)
  - ABDOMINAL DISCOMFORT [None]
  - ASTHMA [None]
  - PRODUCT QUALITY ISSUE [None]
